FAERS Safety Report 4869178-X (Version None)
Quarter: 2005Q4

REPORT INFORMATION
  Report Type: 
  Country: None (occurrence: None)
  Receive Date: 20051230
  Receipt Date: 20040412
  Transmission Date: 20060501
  Serious: Yes (Other)
  Sender: FDA-Public Use
  Company Number: PHBS2004CA04976

PATIENT
  Sex: Female

DRUGS (11)
  1. PREDNISONE TAB [Concomitant]
  2. VINCRISTINE + ADRIAMYCIN + DEXAMETHASONE [Concomitant]
     Dosage: 2 CYCLES
  3. AUTOLOGOUS PBST [Concomitant]
  4. GABAPENTIN [Concomitant]
     Route: 065
  5. PLAVIX [Concomitant]
     Route: 065
  6. VIOXX [Concomitant]
     Route: 065
  7. AMITRIPTYLINE [Concomitant]
     Route: 065
  8. MORPHINE [Concomitant]
     Route: 065
  9. STEROIDS NOS [Concomitant]
     Route: 065
  10. CYCLOPHOSPHAMIDE [Concomitant]
     Route: 065
  11. PAMIDRONATE DISODIUM [Suspect]
     Indication: MULTIPLE MYELOMA
     Dosage: 90 MG, QMO
     Route: 042
     Dates: start: 19960101

REACTIONS (12)
  - ABSCESS JAW [None]
  - ACTINOMYCOSIS [None]
  - BONE DISORDER [None]
  - CEREBROVASCULAR ACCIDENT [None]
  - DIZZINESS [None]
  - INTERVERTEBRAL DISC OPERATION [None]
  - MALIGNANT NEOPLASM PROGRESSION [None]
  - NERVE COMPRESSION [None]
  - OSTEOMYELITIS CHRONIC [None]
  - OSTEONECROSIS [None]
  - PAIN IN EXTREMITY [None]
  - PAIN IN JAW [None]
